FAERS Safety Report 24138801 (Version 1)
Quarter: 2024Q3

REPORT INFORMATION
  Report Type: Spontaneous
  Country: CN (occurrence: CN)
  Receive Date: 20240725
  Receipt Date: 20240725
  Transmission Date: 20241016
  Serious: Yes (Other)
  Sender: BEIGENE
  Company Number: CN-BEIGENE-BGN-2024-011229

PATIENT

DRUGS (4)
  1. TISLELIZUMAB [Suspect]
     Active Substance: TISLELIZUMAB
     Indication: Ovarian cancer
     Dosage: 0.2 GRAM
     Route: 041
     Dates: start: 20240619
  2. CYCLOPHOSPHAMIDE [Suspect]
     Active Substance: CYCLOPHOSPHAMIDE
     Indication: Ovarian cancer
     Dosage: 50 MILLIGRAM, QD 14D
     Route: 048
     Dates: start: 20240619
  3. BEVACIZUMAB [Suspect]
     Active Substance: BEVACIZUMAB
     Indication: Ovarian cancer
     Dosage: 400 MILLIGRAM
     Route: 041
     Dates: start: 20240619
  4. CATEQUENTINIB DIHYDROCHLORIDE [Suspect]
     Active Substance: CATEQUENTINIB DIHYDROCHLORIDE
     Indication: Ovarian cancer
     Dosage: 10 MILLIGRAM, QD 14D
     Route: 048
     Dates: start: 20240619

REACTIONS (1)
  - Myelosuppression [Recovering/Resolving]

NARRATIVE: CASE EVENT DATE: 20240709
